FAERS Safety Report 8887509 (Version 1)
Quarter: 2012Q4

REPORT INFORMATION
  Report Type: Spontaneous
  Country: US (occurrence: None)
  Receive Date: 20121101
  Receipt Date: 20121101
  Transmission Date: 20130627
  Serious: Yes (Hospitalization)
  Sender: FDA-Public Use
  Company Number: None

PATIENT
  Age: 72 Year
  Sex: Male
  Weight: 124.09 kg

DRUGS (13)
  1. LITHIUM [Suspect]
     Indication: BIPOLAR DISORDER
     Dosage: CHRONIC WITH RECENT INCREASE
     Route: 048
  2. COUMADIN [Suspect]
     Indication: ATRIAL FIBRILLATION
     Dosage: CHRONIC
     Route: 048
  3. KLOR-CON [Concomitant]
  4. COREG [Concomitant]
  5. RAMIPRIL [Concomitant]
  6. TRICOR [Concomitant]
  7. LAMICTAL [Concomitant]
  8. VIT D [Concomitant]
  9. XANAX [Concomitant]
  10. SYNTHROID [Concomitant]
  11. METOLAZONE [Concomitant]
  12. ASA [Concomitant]
  13. LASIX [Concomitant]

REACTIONS (15)
  - Pneumonia [None]
  - Respiratory disorder [None]
  - Cardiac disorder [None]
  - Toxicity to various agents [None]
  - Encephalopathy [None]
  - Renal failure acute [None]
  - Hypoperfusion [None]
  - Hypovolaemia [None]
  - Coagulopathy [None]
  - Renal failure chronic [None]
  - Nephritis [None]
  - Cardiac output decreased [None]
  - Metabolic disorder [None]
  - International normalised ratio increased [None]
  - Pain [None]
